FAERS Safety Report 9423081 (Version 2)
Quarter: 2013Q4

REPORT INFORMATION
  Report Type: Spontaneous
  Country: IT (occurrence: IT)
  Receive Date: 20130726
  Receipt Date: 20131003
  Transmission Date: 20140711
  Serious: Yes (Hospitalization)
  Sender: FDA-Public Use
  Company Number: IT-GLAXOSMITHKLINE-B0911082A

PATIENT
  Age: 45 Year
  Sex: Female

DRUGS (5)
  1. SEREUPIN [Suspect]
     Indication: ANXIETY
     Dosage: 520MG PER DAY
     Route: 048
     Dates: start: 20130510, end: 20130510
  2. FLURAZEPAM MONOHYDROCHLORIDE [Suspect]
     Indication: INSOMNIA
     Dosage: 420MG PER DAY
     Route: 048
     Dates: start: 20130510, end: 20130510
  3. LEXOTAN [Suspect]
     Indication: ANXIETY
     Dosage: 90MG PER DAY
     Route: 048
     Dates: start: 20130510, end: 20130510
  4. PROVISACOR [Suspect]
     Indication: DYSLIPIDAEMIA
     Dosage: 30MG PER DAY
     Route: 048
     Dates: start: 20130510, end: 20130510
  5. SEROQUEL [Suspect]
     Indication: PSYCHOTIC DISORDER
     Dosage: 1700MG PER DAY
     Route: 048
     Dates: start: 20130510, end: 20130510

REACTIONS (4)
  - Sopor [Unknown]
  - Drug abuse [Unknown]
  - Overdose [Unknown]
  - Somnolence [Unknown]
